FAERS Safety Report 14370391 (Version 1)
Quarter: 2018Q1

REPORT INFORMATION
  Report Type: Spontaneous
  Country: US (occurrence: US)
  Receive Date: 20180110
  Receipt Date: 20180110
  Transmission Date: 20180509
  Serious: Yes (Life-Threatening)
  Sender: FDA-Public Use
  Company Number: US-GLENMARK PHARMACEUTICALS-2017GMK030549

PATIENT
  Age: 42 Year
  Sex: Female

DRUGS (6)
  1. EPINEPHRINE. [Suspect]
     Active Substance: EPINEPHRINE
     Indication: PRODUCT USED FOR UNKNOWN INDICATION
     Dosage: 1:200000, THROUGH CATHETER
     Route: 050
  2. MIDAZOLAM [Concomitant]
     Active Substance: MIDAZOLAM HYDROCHLORIDE
     Indication: PREMEDICATION
     Dosage: 3 MG, UNK
     Route: 065
  3. LIDOCAINE. [Suspect]
     Active Substance: LIDOCAINE
     Indication: PRODUCT USED FOR UNKNOWN INDICATION
     Dosage: 3 CC TEST DOSE THROUGH CATHETER
     Route: 048
  4. FENTANYL. [Concomitant]
     Active Substance: FENTANYL
     Dosage: 20 MCG, UNK
     Route: 037
  5. BUPIVACAINE. [Concomitant]
     Active Substance: BUPIVACAINE
     Indication: PRODUCT USED FOR UNKNOWN INDICATION
     Dosage: 10 MG, UNK
     Route: 037
  6. FENTANYL. [Concomitant]
     Active Substance: FENTANYL
     Indication: PREMEDICATION
     Dosage: 50 MCG, UNK
     Route: 065

REACTIONS (7)
  - Unresponsive to stimuli [Recovered/Resolved]
  - Apnoea [Recovered/Resolved]
  - Incorrect route of drug administration [Unknown]
  - Bradycardia [Recovered/Resolved]
  - Headache [Unknown]
  - Pulse absent [Recovered/Resolved]
  - Hypotension [Recovered/Resolved]
